FAERS Safety Report 16997241 (Version 1)
Quarter: 2019Q4

REPORT INFORMATION
  Report Type: Report from Study
  Country: CH (occurrence: CH)
  Receive Date: 20191106
  Receipt Date: 20191106
  Transmission Date: 20200122
  Serious: Yes (Other)
  Sender: FDA-Public Use
  Company Number: CH-ROCHE-2465483

PATIENT
  Sex: Male

DRUGS (3)
  1. RANIBIZUMAB. [Suspect]
     Active Substance: RANIBIZUMAB
     Indication: VISUAL IMPAIRMENT
     Dosage: 0.5 MG, ONCE/SINGLE, IN RIGHT AND LEFT EYE
     Route: 050
     Dates: start: 20190227
  2. RANIBIZUMAB. [Suspect]
     Active Substance: RANIBIZUMAB
     Dosage: 0.5, ONCE/SINGLE, IN RIGHT AND LEFT EYE
     Route: 050
     Dates: start: 20190327
  3. RANIBIZUMAB. [Suspect]
     Active Substance: RANIBIZUMAB
     Route: 050
     Dates: start: 20190626

REACTIONS (3)
  - Cystoid macular oedema [Recovered/Resolved]
  - Corneal erosion [Recovered/Resolved]
  - Retinal thickening [Recovered/Resolved]

NARRATIVE: CASE EVENT DATE: 20190430
